FAERS Safety Report 9813740 (Version 1)
Quarter: 2014Q1

REPORT INFORMATION
  Report Type: Spontaneous
  Country: US (occurrence: None)
  Receive Date: 20140109
  Receipt Date: 20140109
  Transmission Date: 20141002
  Serious: No
  Sender: FDA-Public Use
  Company Number: None

PATIENT
  Age: 54 Year
  Sex: Male

DRUGS (2)
  1. DDAVP [Suspect]
     Indication: ENURESIS
     Route: 048
     Dates: start: 20131113, end: 20131121
  2. CLOZARIL [Suspect]
     Indication: MENTAL DISORDER
     Route: 048
     Dates: start: 20130924, end: 20140108

REACTIONS (1)
  - Blood sodium decreased [None]
